FAERS Safety Report 8905630 (Version 5)
Quarter: 2014Q3

REPORT INFORMATION
  Report Type: Spontaneous
  Country: US (occurrence: US)
  Receive Date: 20121113
  Receipt Date: 20140821
  Transmission Date: 20150326
  Serious: Yes (Hospitalization, Disabling)
  Sender: FDA-Public Use
  Company Number: US-009507513-1211USA003848

PATIENT
  Sex: Male

DRUGS (1)
  1. PROPECIA [Suspect]
     Active Substance: FINASTERIDE
     Indication: ALOPECIA
     Dosage: 1 MG, QD
     Route: 048
     Dates: start: 20041117, end: 20110718

REACTIONS (17)
  - Joint injury [Unknown]
  - Knee operation [Unknown]
  - Fatigue [Unknown]
  - Knee operation [Unknown]
  - Pain [Unknown]
  - Joint dislocation [Unknown]
  - Drug ineffective [Unknown]
  - Libido decreased [Unknown]
  - Knee operation [Unknown]
  - Shoulder operation [Unknown]
  - Joint injury [Unknown]
  - Erectile dysfunction [Unknown]
  - Blood testosterone decreased [Unknown]
  - Hypogonadism male [Unknown]
  - Sexual dysfunction [Not Recovered/Not Resolved]
  - Cognitive disorder [Not Recovered/Not Resolved]
  - Psychosexual disorder [Unknown]

NARRATIVE: CASE EVENT DATE: 20050207
